FAERS Safety Report 15432850 (Version 1)
Quarter: 2018Q3

REPORT INFORMATION
  Report Type: Spontaneous
  Country: NL (occurrence: NL)
  Receive Date: 20180927
  Receipt Date: 20180927
  Transmission Date: 20181010
  Serious: Yes (Hospitalization)
  Sender: FDA-Public Use
  Company Number: NL-TEVA-2018-NL-958875

PATIENT
  Age: 29 Year
  Sex: Female

DRUGS (1)
  1. INDOMETACIN [Suspect]
     Active Substance: INDOMETHACIN
     Indication: CHRONIC PAROXYSMAL HEMICRANIA
     Dosage: 50 MILLIGRAM DAILY; 1 X 50 MG
     Route: 065
     Dates: start: 20170701, end: 20180709

REACTIONS (9)
  - Asthenia [Recovered/Resolved]
  - Urticaria [Recovered/Resolved]
  - Tremor [Recovered/Resolved]
  - Dysarthria [Recovered/Resolved]
  - Pyrexia [Recovered/Resolved]
  - Ataxia [Recovered/Resolved]
  - Petechiae [Recovered/Resolved]
  - Musculoskeletal stiffness [Recovered/Resolved]
  - Purpura [Recovered/Resolved]

NARRATIVE: CASE EVENT DATE: 20170705
